FAERS Safety Report 15224823 (Version 1)
Quarter: 2018Q3

REPORT INFORMATION
  Report Type: Spontaneous
  Country: BE (occurrence: BE)
  Receive Date: 20180731
  Receipt Date: 20180731
  Transmission Date: 20181010
  Serious: Yes (Hospitalization)
  Sender: FDA-Public Use
  Company Number: PHHY2018BE059953

PATIENT
  Sex: Male

DRUGS (4)
  1. NEXIAM [Concomitant]
     Active Substance: ESOMEPRAZOLE
     Indication: PRODUCT USED FOR UNKNOWN INDICATION
     Dosage: UNK
     Route: 065
  2. DAKTARIN [Concomitant]
     Active Substance: MICONAZOLE NITRATE
     Indication: TINEA PEDIS
     Dosage: UNK
     Route: 065
  3. LAMISIL [Suspect]
     Active Substance: TERBINAFINE HYDROCHLORIDE
     Indication: FUNGAL SKIN INFECTION
     Dosage: 1 DF, QD
     Route: 048
     Dates: end: 20170531
  4. COVERAM [Concomitant]
     Active Substance: AMLODIPINE\PERINDOPRIL
     Indication: PRODUCT USED FOR UNKNOWN INDICATION
     Dosage: UNK
     Route: 065

REACTIONS (8)
  - Jaundice [Unknown]
  - Pruritus [Unknown]
  - Fatigue [Unknown]
  - Hepatitis [Unknown]
  - Malaise [Unknown]
  - Myalgia [Unknown]
  - Chromaturia [Unknown]
  - Abdominal pain [Unknown]

NARRATIVE: CASE EVENT DATE: 20180531
